FAERS Safety Report 10179241 (Version 1)
Quarter: 2014Q2

REPORT INFORMATION
  Report Type: Spontaneous
  Country: US (occurrence: US)
  Receive Date: 20140519
  Receipt Date: 20140519
  Transmission Date: 20141212
  Serious: No
  Sender: FDA-Public Use
  Company Number: US-BAYER-2014-066379

PATIENT
  Sex: Female
  Weight: 66 kg

DRUGS (2)
  1. ALEVE CAPLET [Suspect]
     Indication: ARTHRITIS
     Dosage: UNK
     Route: 048
     Dates: end: 1994
  2. TYLENOL 1 [Concomitant]

REACTIONS (4)
  - Feeling abnormal [Recovered/Resolved]
  - Therapeutic response delayed [Recovered/Resolved]
  - Hypertension [None]
  - Dizziness [Recovered/Resolved]
